FAERS Safety Report 4591141-7 (Version None)
Quarter: 2005Q1

REPORT INFORMATION
  Report Type: 
  Country: None (occurrence: None)
  Receive Date: 20050225
  Receipt Date: 20050214
  Transmission Date: 20050727
  Serious: Yes (Hospitalization)
  Sender: FDA-Public Use
  Company Number: FR-JNJFOC-20050203812

PATIENT
  Age: 86 Year
  Sex: Female

DRUGS (8)
  1. REMINYL [Suspect]
     Indication: DRUG USE FOR UNKNOWN INDICATION
     Route: 049
     Dates: end: 20050101
  2. MONICOR [Concomitant]
     Route: 065
  3. EFFEXOR [Concomitant]
     Route: 065
  4. DIGOXIN [Concomitant]
     Route: 065
  5. CORDARONE [Concomitant]
     Route: 065
  6. ALLOPURINOL [Concomitant]
     Route: 065
  7. BURINEX [Concomitant]
     Route: 065
  8. NUCTALON [Concomitant]
     Route: 065

REACTIONS (1)
  - PULMONARY OEDEMA [None]
